FAERS Safety Report 4403641-0 (Version None)
Quarter: 2004Q3

REPORT INFORMATION
  Report Type: 
  Country: None (occurrence: None)
  Receive Date: 20040715
  Receipt Date: 20040706
  Transmission Date: 20050211
  Serious: Yes (Hospitalization, Other)
  Sender: FDA-Public Use
  Company Number: 2004039618

PATIENT
  Age: 56 Year
  Sex: Male
  Weight: 96.1626 kg

DRUGS (6)
  1. VIAGRA [Suspect]
     Indication: ERECTILE DYSFUNCTION
     Dosage: 50 MG, AS NEEDED, ORAL
     Route: 048
  2. ALL OTHER THERAPEUTIC PRODUCT ALL OTHER THERAPEUTIC PRODUCTS) [Suspect]
     Indication: ANAESTHESIA
     Dates: start: 20040101, end: 20040101
  3. TAMSULOSIN HYDROCHLORIDE (TAMSULOSIN HYDROCHLORIDE) [Suspect]
     Indication: BENIGN PROSTATIC HYPERPLASIA
     Dosage: 0.4 MG (0.4 MG, 1 IN 1 D), ORAL
     Route: 048
     Dates: start: 20040430, end: 20040610
  4. INSULIN [Concomitant]
  5. OLMESARTAN MEDOXOMIL (OLMESARTAN MEDOXOMIL) [Concomitant]
  6. ROSUVASTATIN 9ROSUVASTATIN) [Concomitant]

REACTIONS (6)
  - ANAESTHETIC COMPLICATION [None]
  - ANURIA [None]
  - BENIGN PROSTATIC HYPERPLASIA [None]
  - DIZZINESS [None]
  - DRUG INTERACTION [None]
  - INGUINAL HERNIA [None]
